FAERS Safety Report 19182026 (Version 2)
Quarter: 2021Q2

REPORT INFORMATION
  Report Type: Spontaneous
  Country: US (occurrence: US)
  Receive Date: 20210426
  Receipt Date: 20210506
  Transmission Date: 20210717
  Serious: Yes (Hospitalization, Other)
  Sender: FDA-Public Use
  Company Number: US-PFIZER INC-2021422460

PATIENT
  Age: 63 Year
  Sex: Male

DRUGS (1)
  1. XELJANZ XR [Suspect]
     Active Substance: TOFACITINIB CITRATE
     Indication: RHEUMATOID ARTHRITIS
     Dosage: 11 MG, 1X/DAY
     Route: 048
     Dates: start: 202012, end: 20210410

REACTIONS (3)
  - Rib fracture [Unknown]
  - Fall [Unknown]
  - Intentional dose omission [Unknown]

NARRATIVE: CASE EVENT DATE: 202104
